FAERS Safety Report 6337767-1 (Version None)
Quarter: 2009Q3

REPORT INFORMATION
  Report Type: 
  Country: None (occurrence: None)
  Receive Date: 20090902
  Receipt Date: 20090812
  Transmission Date: 20100115
  Serious: Yes (Other)
  Sender: FDA-Public Use
  Company Number: GB-B.I. PHARMACEUTICALS,INC./RIDGEFIELD-2009-UK-00713UK

PATIENT
  Sex: Female

DRUGS (1)
  1. PERSANTIN [Suspect]
     Route: 048

REACTIONS (3)
  - LIP SWELLING [None]
  - NASAL DRYNESS [None]
  - THROAT TIGHTNESS [None]
